FAERS Safety Report 9704970 (Version 2)
Quarter: 2013Q4

REPORT INFORMATION
  Report Type: Spontaneous
  Country: JP (occurrence: JP)
  Receive Date: 20131122
  Receipt Date: 20131204
  Transmission Date: 20140711
  Serious: Yes (Hospitalization)
  Sender: FDA-Public Use
  Company Number: JP-ASTELLAS-2013JP012828

PATIENT
  Age: 82 Year
  Sex: Male

DRUGS (6)
  1. VESICARE [Suspect]
     Indication: POLLAKIURIA
     Dosage: 5 MG, PRN
     Route: 048
     Dates: end: 20131112
  2. VESICARE [Suspect]
     Dosage: 5 MG, UID/QD
     Route: 048
  3. VESICARE [Suspect]
     Dosage: 2.5 MG, UID/QD
     Route: 048
     Dates: start: 20131114
  4. ETIZOLAM [Suspect]
     Dosage: 1 MG, UNKNOWN/D
     Route: 048
  5. HOCHUEKKITO [Suspect]
     Route: 048
  6. THEODUR [Concomitant]
     Dosage: 200 MG, UNKNOWN/D
     Route: 048

REACTIONS (2)
  - Intentional drug misuse [Unknown]
  - Pneumonia [Unknown]
